FAERS Safety Report 18024520 (Version 1)
Quarter: 2020Q3

REPORT INFORMATION
  Report Type: Spontaneous
  Country: US (occurrence: US)
  Receive Date: 20200714
  Receipt Date: 20200714
  Transmission Date: 20201103
  Serious: Yes (Life-Threatening, Hospitalization)
  Sender: FDA-Public Use
  Company Number: None

PATIENT
  Age: 71 Year
  Sex: Male

DRUGS (1)
  1. TIKOSYN [Suspect]
     Active Substance: DOFETILIDE
     Route: 048
     Dates: start: 20200610, end: 20200611

REACTIONS (6)
  - Amnesia [None]
  - Head injury [None]
  - Retching [None]
  - Headache [None]
  - Fall [None]
  - Torsade de pointes [None]

NARRATIVE: CASE EVENT DATE: 20200611
